FAERS Safety Report 11072960 (Version 5)
Quarter: 2016Q1

REPORT INFORMATION
  Report Type: Report from Study
  Country: DE (occurrence: DE)
  Receive Date: 20150428
  Receipt Date: 20160108
  Transmission Date: 20160525
  Serious: Yes (Other)
  Sender: FDA-Public Use
  Company Number: DE-GILEAD-2015-0149687

PATIENT
  Age: 64 Year
  Sex: Male
  Weight: 90.4 kg

DRUGS (9)
  1. LEDIPASVIR/SOFOSBUVIR [Suspect]
     Active Substance: LEDIPASVIR\SOFOSBUVIR
     Indication: CHRONIC HEPATITIS C
     Dosage: 1 DF, QD
     Route: 048
     Dates: start: 20141213, end: 20150531
  2. SANDIMMUNE [Concomitant]
     Active Substance: CYCLOSPORINE
  3. ALLOPURINOL. [Concomitant]
     Active Substance: ALLOPURINOL
  4. AMIODARONE [Suspect]
     Active Substance: AMIODARONE
     Indication: PRODUCT USED FOR UNKNOWN INDICATION
     Dosage: UNK
     Route: 065
  5. CELLCEPT [Concomitant]
     Active Substance: MYCOPHENOLATE MOFETIL\MYCOPHENOLATE MOFETIL HYDROCHLORIDE
  6. LACTULOSE. [Concomitant]
     Active Substance: LACTULOSE
  7. TOREM                              /01036501/ [Concomitant]
     Active Substance: TORSEMIDE
  8. INSULIN [Concomitant]
     Active Substance: INSULIN NOS
  9. MAGNESIUM                          /01455601/ [Concomitant]

REACTIONS (1)
  - Hyperthyroidism [Recovered/Resolved]

NARRATIVE: CASE EVENT DATE: 20150206
